FAERS Safety Report 23386675 (Version 4)
Quarter: 2024Q2

REPORT INFORMATION
  Report Type: Spontaneous
  Country: DE (occurrence: DE)
  Receive Date: 20240110
  Receipt Date: 20240502
  Transmission Date: 20240716
  Serious: Yes (Other)
  Sender: FDA-Public Use
  Company Number: DE-AMGEN-DEUSP2024002010

PATIENT

DRUGS (2)
  1. REPATHA [Suspect]
     Active Substance: EVOLOCUMAB
     Indication: Product used for unknown indication
     Dosage: 140 MILLIGRAM
     Route: 065
     Dates: start: 20231110
  2. ASPIRIN [Concomitant]
     Active Substance: ASPIRIN
     Indication: Myocardial infarction
     Dosage: 100 IA, QD

REACTIONS (15)
  - Arteriospasm coronary [Unknown]
  - Myocardial infarction [Unknown]
  - Coronary artery disease [Unknown]
  - Hypoaesthesia [Unknown]
  - Trigger finger [Unknown]
  - Sleep disorder [Unknown]
  - Balance disorder [Unknown]
  - Asthenia [Unknown]
  - Gastrointestinal disorder [Unknown]
  - Pruritus [Unknown]
  - Dyspnoea [Unknown]
  - Hypercholesterolaemia [Unknown]
  - Myalgia [Unknown]
  - Headache [Unknown]
  - Back pain [Unknown]
